FAERS Safety Report 9227722 (Version 1)
Quarter: 2013Q2

REPORT INFORMATION
  Report Type: Spontaneous
  Country: GB (occurrence: GB)
  Receive Date: 20130412
  Receipt Date: 20130412
  Transmission Date: 20140414
  Serious: Yes (Other)
  Sender: FDA-Public Use
  Company Number: GB-ELI_LILLY_AND_COMPANY-GB201303000788

PATIENT
  Age: 6 Year
  Sex: Male
  Weight: 21.7 kg

DRUGS (1)
  1. STRATTERA [Suspect]
     Indication: ATTENTION DEFICIT/HYPERACTIVITY DISORDER
     Dosage: 10 MG, QD
     Route: 048
     Dates: start: 20121106

REACTIONS (3)
  - Angina pectoris [Recovered/Resolved]
  - Cardiac flutter [Recovered/Resolved]
  - Chest discomfort [Recovered/Resolved]
